FAERS Safety Report 18955267 (Version 3)
Quarter: 2021Q1

REPORT INFORMATION
  Report Type: Report from Study
  Country: US (occurrence: US)
  Receive Date: 20210301
  Receipt Date: 20210330
  Transmission Date: 20210420
  Serious: Yes (Death, Hospitalization)
  Sender: FDA-Public Use
  Company Number: US-EXELIXIS-XL18421037842

PATIENT

DRUGS (2)
  1. XL184 [Suspect]
     Active Substance: CABOZANTINIB
     Indication: OROPHARYNGEAL CANCER
     Dosage: 40 MG, QD
     Route: 048
     Dates: start: 20200806
  2. PEMBROLIZUMAB. [Suspect]
     Active Substance: PEMBROLIZUMAB
     Indication: OROPHARYNGEAL CANCER
     Dosage: 200 MG, Q3WEEKS
     Route: 042
     Dates: start: 20200806

REACTIONS (9)
  - Death [Fatal]
  - Aspiration [Unknown]
  - Disease progression [Unknown]
  - Ear pain [Unknown]
  - Oropharyngeal pain [Unknown]
  - Failure to thrive [Unknown]
  - Dysphagia [Unknown]
  - Productive cough [Not Recovered/Not Resolved]
  - Weight decreased [Unknown]

NARRATIVE: CASE EVENT DATE: 20210222
